FAERS Safety Report 4858690-5 (Version None)
Quarter: 2005Q4

REPORT INFORMATION
  Report Type: 
  Country: None (occurrence: None)
  Receive Date: 20051219
  Receipt Date: 20051018
  Transmission Date: 20060501
  Serious: No
  Sender: FDA-Public Use
  Company Number: US-GLAXOSMITHKLINE-A0578829A

PATIENT
  Age: 33 Year

DRUGS (4)
  1. EQUATE NTS 14MG [Suspect]
     Dates: start: 20050925, end: 20050926
  2. NICORETTE [Suspect]
     Indication: DRUG USE FOR UNKNOWN INDICATION
     Dates: start: 20050926, end: 20050927
  3. LITHIUM [Concomitant]
  4. NEURONTIN [Concomitant]

REACTIONS (2)
  - DIZZINESS [None]
  - NAUSEA [None]
